FAERS Safety Report 9026574 (Version 1)
Quarter: 2013Q1

REPORT INFORMATION
  Report Type: Spontaneous
  Country: US (occurrence: None)
  Receive Date: 20130107
  Receipt Date: 20130122
  Transmission Date: 20140127
  Serious: Yes (Other)
  Sender: FDA-Public Use
  Company Number: 2012-00213

PATIENT
  Age: 70 Year
  Sex: Female
  Weight: 81.65 kg

DRUGS (10)
  1. ZICAM EXTREME CONGESTION RELIEF [Suspect]
     Dosage: 2-3X DAILY
     Dates: end: 20121226
  2. ZICAM EXTREME CONGESTION RELIEF [Suspect]
     Dosage: 2-3X DAILY
     Dates: end: 20121226
  3. ZICAM INTENSE SINUS RELIEF [Suspect]
     Dosage: 2-3X DAILY
     Dates: end: 20121226
  4. UNKNOWN ANTIHYPERTENSIVE [Concomitant]
  5. NORCO [Concomitant]
  6. MOTRIN [Concomitant]
  7. KLONOPIN [Concomitant]
  8. TIZANIDINE [Concomitant]
  9. SYNTHROID [Concomitant]
  10. TESTOSTERONE [Concomitant]

REACTIONS (4)
  - Hypertension [None]
  - Feeling abnormal [None]
  - Flushing [None]
  - Drug dependence [None]
